FAERS Safety Report 13393113 (Version 1)
Quarter: 2017Q1

REPORT INFORMATION
  Report Type: Spontaneous
  Country: US (occurrence: US)
  Receive Date: 20170331
  Receipt Date: 20170331
  Transmission Date: 20170429
  Serious: Yes (Hospitalization, Other)
  Sender: FDA-Public Use
  Company Number: US-ASTRAZENECA-2017SE32119

PATIENT
  Age: 66 Year
  Sex: Female

DRUGS (15)
  1. COLACE [Concomitant]
     Active Substance: DOCUSATE SODIUM
     Indication: SYNCOPE
     Route: 048
  2. ATENOLOL. [Suspect]
     Active Substance: ATENOLOL
     Indication: BLOOD CHOLESTEROL
     Route: 048
  3. XANAX [Concomitant]
     Active Substance: ALPRAZOLAM
     Indication: PANIC ATTACK
     Dosage: 0.75 MG 3 TO 4 TIMES A DAY
     Route: 048
  4. EYE DROPS, NO PRODUCT MENTIONED [Concomitant]
     Indication: EYE DISORDER
     Route: 047
  5. CRESTOR [Suspect]
     Active Substance: ROSUVASTATIN CALCIUM
     Indication: BLOOD CHOLESTEROL
     Route: 048
  6. FERROUS SULFATE. [Concomitant]
     Active Substance: FERROUS SULFATE
     Indication: CHRONIC KIDNEY DISEASE
     Route: 048
  7. ATENOLOL. [Concomitant]
     Active Substance: ATENOLOL
     Indication: TACHYCARDIA
     Route: 048
  8. NIFEDIPINE. [Concomitant]
     Active Substance: NIFEDIPINE
     Dosage: 10 MG ONCE A DAY FOR A WEEK AND THEN INCREASED TO TWICE A DAY
  9. XANAX [Concomitant]
     Active Substance: ALPRAZOLAM
     Indication: DEPRESSION
     Dosage: 0.75 MG 3 TO 4 TIMES A DAY
     Route: 048
  10. CALCIUM CARBONATE. [Concomitant]
     Active Substance: CALCIUM CARBONATE
     Indication: PARATHYROID DISORDER
     Dosage: 1250 MCG TWICE A DAY,
     Dates: start: 201512
  11. ATENOLOL. [Suspect]
     Active Substance: ATENOLOL
     Indication: BLOOD CHOLESTEROL
     Route: 048
  12. PROZAC [Concomitant]
     Active Substance: FLUOXETINE HYDROCHLORIDE
     Indication: DEPRESSION
     Route: 048
  13. CALCITRIOL. [Concomitant]
     Active Substance: CALCITRIOL
  14. LANTUS [Concomitant]
     Active Substance: INSULIN GLARGINE
     Dosage: 20 IU A DAY IN THE MORNING
  15. CRESTOR [Suspect]
     Active Substance: ROSUVASTATIN CALCIUM
     Indication: BLOOD CHOLESTEROL
     Route: 048

REACTIONS (26)
  - Hypertension [Unknown]
  - Oedema [Recovering/Resolving]
  - Arthralgia [Not Recovered/Not Resolved]
  - Blood sodium increased [Unknown]
  - Chronic kidney disease [Not Recovered/Not Resolved]
  - Nausea [Not Recovered/Not Resolved]
  - Blood cholesterol increased [Not Recovered/Not Resolved]
  - Blood electrolytes abnormal [Unknown]
  - Musculoskeletal stiffness [Not Recovered/Not Resolved]
  - Feeling abnormal [Not Recovered/Not Resolved]
  - Insomnia [Not Recovered/Not Resolved]
  - Muscle spasms [Not Recovered/Not Resolved]
  - Pleural effusion [Recovered/Resolved]
  - Parathyroid disorder [Not Recovered/Not Resolved]
  - Blood calcium increased [Unknown]
  - Diabetes mellitus inadequate control [Unknown]
  - Joint stiffness [Unknown]
  - Intentional product misuse [Unknown]
  - Blood glucose fluctuation [Unknown]
  - Pain in extremity [Not Recovered/Not Resolved]
  - Joint lock [Not Recovered/Not Resolved]
  - Gait disturbance [Recovering/Resolving]
  - Musculoskeletal stiffness [Unknown]
  - Syncope [Recovered/Resolved]
  - Weight decreased [Unknown]
  - Blood potassium increased [Unknown]

NARRATIVE: CASE EVENT DATE: 2013
